FAERS Safety Report 4866245-1 (Version None)
Quarter: 2005Q4

REPORT INFORMATION
  Report Type: 
  Country: None (occurrence: None)
  Receive Date: 20051220
  Receipt Date: 20051205
  Transmission Date: 20060501
  Serious: Yes (Death, Life-Threatening, Hospitalization)
  Sender: FDA-Public Use
  Company Number: 2005PL000100

PATIENT
  Age: 80 Year
  Sex: Male

DRUGS (3)
  1. ALLOPURINOL [Suspect]
     Indication: HYPERURICAEMIA
     Dosage: 300 MG QD
  2. OMEPRAZOLE [Concomitant]
  3. FUROSEMIDE [Concomitant]

REACTIONS (17)
  - ABDOMINAL PAIN [None]
  - ALANINE AMINOTRANSFERASE INCREASED [None]
  - ANOREXIA [None]
  - ASTHENIA [None]
  - BLOOD ALKALINE PHOSPHATASE INCREASED [None]
  - BLOOD BILIRUBIN INCREASED [None]
  - CHOLESTASIS [None]
  - DIARRHOEA [None]
  - DRUG HYPERSENSITIVITY [None]
  - GRANULOMATOUS LIVER DISEASE [None]
  - HEPATIC ENCEPHALOPATHY [None]
  - HEPATIC FAILURE [None]
  - HEPATOMEGALY [None]
  - JAUNDICE [None]
  - PROTHROMBIN TIME PROLONGED [None]
  - PYREXIA [None]
  - SKIN LESION [None]
